FAERS Safety Report 9373242 (Version 2)
Quarter: 2013Q3

REPORT INFORMATION
  Report Type: Spontaneous
  Country: KR (occurrence: KR)
  Receive Date: 20130627
  Receipt Date: 20130730
  Transmission Date: 20140515
  Serious: Yes (Other)
  Sender: FDA-Public Use
  Company Number: KR-JNJFOC-20130611495

PATIENT
  Age: 51 Year
  Sex: Female

DRUGS (4)
  1. STELARA [Suspect]
     Indication: PSORIASIS
     Route: 058
     Dates: start: 20130225
  2. STELARA [Suspect]
     Indication: PSORIASIS
     Dosage: 3RD DOSE
     Route: 058
     Dates: start: 20130618
  3. REMICUT [Concomitant]
     Route: 065
     Dates: start: 20100507
  4. AZEPTIN [Concomitant]
     Route: 065
     Dates: start: 20121116

REACTIONS (2)
  - Cellulitis [Recovered/Resolved]
  - Fungal infection [Recovered/Resolved]
